FAERS Safety Report 24669170 (Version 1)
Quarter: 2024Q4

REPORT INFORMATION
  Report Type: Spontaneous
  Country: US (occurrence: US)
  Receive Date: 20241127
  Receipt Date: 20241127
  Transmission Date: 20250115
  Serious: Yes (Death, Hospitalization, Other)
  Sender: STRIDES
  Company Number: US-STRIDES ARCOLAB LIMITED-2024SP015240

PATIENT
  Age: 71 Year
  Sex: Female

DRUGS (7)
  1. LETROZOLE [Suspect]
     Active Substance: LETROZOLE
     Indication: Endometrial cancer stage III
     Dosage: UNK, CYCLICAL (RECEIVED 13 CYCLES)
     Route: 065
  2. CARBOPLATIN [Suspect]
     Active Substance: CARBOPLATIN
     Indication: Endometrial cancer stage III
     Dosage: UNK, CYCLICAL (RECEIVED 4 CYCLES)
     Route: 065
  3. ABRAXANE [Suspect]
     Active Substance: PACLITAXEL
     Indication: Endometrial cancer stage III
     Dosage: UNK, CYCLICAL (RECEIVED 4 CYCLES)
     Route: 065
  4. BEVACIZUMAB [Suspect]
     Active Substance: BEVACIZUMAB
     Indication: Endometrial cancer stage III
     Dosage: UNK, CYCLICAL (BEVACIZUMAB)
     Route: 065
  5. PEMBROLIZUMAB [Suspect]
     Active Substance: PEMBROLIZUMAB
     Indication: Endometrial cancer stage III
     Dosage: UNK, CYCLICAL (RECEIVED 47 CYCLES; MONOTHERAPY)
     Route: 065
  6. PEMBROLIZUMAB [Suspect]
     Active Substance: PEMBROLIZUMAB
     Dosage: UNK (ALONG WITH LENVATINIB)
     Route: 065
     Dates: start: 20220805
  7. LENVIMA [Suspect]
     Active Substance: LENVATINIB
     Indication: Endometrial cancer stage III
     Dosage: 10 MILLIGRAM, QD (RECEIVED 10 CYCLES IN COMBINATION WITH PEMBROLIZUMAB)
     Route: 065
     Dates: start: 20220805

REACTIONS (5)
  - Death [Fatal]
  - Hypotension [Unknown]
  - Leukocytosis [Unknown]
  - Malignant neoplasm progression [Recovered/Resolved]
  - Drug ineffective for unapproved indication [Unknown]
